FAERS Safety Report 5818978-8 (Version None)
Quarter: 2008Q3

REPORT INFORMATION
  Report Type: 
  Country: None (occurrence: None)
  Receive Date: 20080721
  Receipt Date: 20080721
  Transmission Date: 20090109
  Serious: Yes (Life-Threatening, Hospitalization)
  Sender: FDA-Public Use
  Company Number: None

PATIENT
  Age: 32 Year
  Sex: Male
  Weight: 62.1428 kg

DRUGS (1)
  1. REMODULIN [Suspect]
     Indication: PULMONARY ARTERIAL HYPERTENSION
     Dosage: 95 NG/KG/MIN CONTINUOUS IV DRIP
     Route: 041

REACTIONS (5)
  - ADVERSE DRUG REACTION [None]
  - DYSPNOEA [None]
  - ENTEROBACTER SEPSIS [None]
  - ORTHOPNOEA [None]
  - OXYGEN SATURATION DECREASED [None]
